FAERS Safety Report 7419597-2 (Version None)
Quarter: 2011Q2

REPORT INFORMATION
  Report Type: 
  Country: None (occurrence: None)
  Receive Date: 20110418
  Receipt Date: 20110408
  Transmission Date: 20111010
  Serious: Yes (Other)
  Sender: FDA-Public Use
  Company Number: FR-NOVOPROD-323356

PATIENT
  Sex: Female
  Weight: 84 kg

DRUGS (3)
  1. GLUCOPHAGE [Concomitant]
     Dosage: 3 G, QD
     Route: 048
     Dates: start: 19950101
  2. VICTOZA [Suspect]
     Indication: TYPE 2 DIABETES MELLITUS
     Dosage: 1.2 MG, QD
     Route: 058
     Dates: start: 20100610, end: 20110101
  3. GLYBURIDE [Concomitant]
     Dosage: 15 MG, QD
     Route: 048
     Dates: start: 19950101

REACTIONS (1)
  - SARCOIDOSIS [None]
